FAERS Safety Report 8402360-3 (Version None)
Quarter: 2012Q2

REPORT INFORMATION
  Report Type: 
  Country: None (occurrence: None)
  Receive Date: 20120529
  Receipt Date: 20120514
  Transmission Date: 20120825
  Serious: Yes (Hospitalization)
  Sender: FDA-Public Use
  Company Number: 2012SP022477

PATIENT
  Age: 60 Year
  Sex: Female

DRUGS (6)
  1. REBETOL [Suspect]
     Indication: HEPATITIS C
     Dosage: (400 MG) 400 MG;QD;PO
     Route: 048
     Dates: start: 20120316, end: 20120417
  2. ALLEGRA [Concomitant]
  3. PEGINTERFERON ALFA-2B [Suspect]
     Indication: HEPATITIS C
     Dosage: 1.5 MCG/KG;QW;SC
     Route: 058
     Dates: start: 20120316, end: 20120413
  4. ANTEBATE [Concomitant]
  5. TELAVIC (ANTIVIRALS NOS) (1500 MG) [Suspect]
     Indication: HEPATITIS C
     Dosage: 1500 MG;QD;PO
     Route: 048
     Dates: start: 20120316, end: 20120417
  6. URSO 250 [Concomitant]

REACTIONS (5)
  - RASH [None]
  - SEPSIS [None]
  - METABOLIC ACIDOSIS [None]
  - PYELONEPHRITIS [None]
  - NEUTROPHIL COUNT DECREASED [None]
